FAERS Safety Report 10619202 (Version 1)
Quarter: 2014Q4

REPORT INFORMATION
  Report Type: Report from Study
  Country: CO (occurrence: None)
  Receive Date: 20141126
  Receipt Date: 20141126
  Transmission Date: 20150529
  Serious: Yes (Hospitalization, Other)
  Sender: FDA-Public Use
  Company Number: 2014-20807

PATIENT
  Age: 84 Year
  Sex: Male

DRUGS (1)
  1. EYLEA [Suspect]
     Active Substance: AFLIBERCEPT
     Indication: DIABETIC RETINAL OEDEMA
     Dosage: 3 APPLICATIONS ON THE LEFT EYE

REACTIONS (8)
  - Cardiac failure [None]
  - Swelling [None]
  - Dyspnoea [None]
  - Abasia [None]
  - Renal failure [None]
  - Blood pressure increased [None]
  - Cerebrovascular accident [None]
  - Choking [None]

NARRATIVE: CASE EVENT DATE: 20141010
